FAERS Safety Report 13049549 (Version 2)
Quarter: 2016Q4

REPORT INFORMATION
  Report Type: Spontaneous
  Country: FR (occurrence: FR)
  Receive Date: 20161221
  Receipt Date: 20161227
  Transmission Date: 20170207
  Serious: Yes (Congenital Anomaly, Other)
  Sender: FDA-Public Use
  Company Number: FR-ABBVIE-16P-056-1815421-00

PATIENT
  Age: 0 Day
  Sex: Male

DRUGS (2)
  1. DEPAKINE CHRONO [Suspect]
     Active Substance: VALPROATE SODIUM
     Indication: MATERNAL EXPOSURE TIMING UNSPECIFIED
     Route: 064
  2. DEPAKINE CHRONO [Suspect]
     Active Substance: VALPROATE SODIUM
     Route: 063

REACTIONS (11)
  - Foetal exposure during pregnancy [Unknown]
  - Dysmorphism [Unknown]
  - Brachydactyly [Unknown]
  - Visual impairment [Not Recovered/Not Resolved]
  - Hypermobility syndrome [Unknown]
  - Foetal anticonvulsant syndrome [Unknown]
  - Cardiac murmur [Not Recovered/Not Resolved]
  - Motor developmental delay [Unknown]
  - Penoscrotal fusion [Unknown]
  - Exposure during breast feeding [Unknown]
  - Inguinal hernia [Unknown]

NARRATIVE: CASE EVENT DATE: 2013
